FAERS Safety Report 6580558-7 (Version None)
Quarter: 2010Q1

REPORT INFORMATION
  Report Type: 
  Country: None (occurrence: None)
  Receive Date: 20100212
  Receipt Date: 20100202
  Transmission Date: 20100710
  Serious: Yes (Hospitalization)
  Sender: FDA-Public Use
  Company Number: FR-PFIZER INC-2010013459

PATIENT
  Age: 63 Year
  Sex: Male

DRUGS (9)
  1. TAHOR [Suspect]
     Dosage: UNK
     Route: 048
     Dates: end: 20090623
  2. AMLOR [Suspect]
     Dosage: UNK
     Route: 048
     Dates: end: 20090623
  3. EFFERALGAN [Suspect]
     Dosage: UNK
     Route: 048
     Dates: start: 20090616, end: 20090623
  4. DI-ANTALVIC [Suspect]
     Dosage: UNK
     Route: 048
     Dates: start: 20090607, end: 20090623
  5. CALCIPARINE [Suspect]
     Indication: THROMBOPHLEBITIS
     Dosage: 0.2 UNK, 2X/DAY
     Route: 058
     Dates: start: 20090603, end: 20090607
  6. CALCIPARINE [Suspect]
     Dosage: 0.5 UNK, 2X/DAY
     Route: 058
     Dates: start: 20090608, end: 20090623
  7. HEPARIN [Suspect]
     Indication: THROMBOPHLEBITIS
     Dosage: UNK
     Route: 042
     Dates: start: 20090624, end: 20090625
  8. PLAVIX [Suspect]
     Indication: ISCHAEMIC HEART DISEASE PROPHYLAXIS
     Dosage: UNK
     Route: 048
     Dates: end: 20090618
  9. COVERSYL [Suspect]
     Dosage: UNK
     Route: 048
     Dates: end: 20090623

REACTIONS (1)
  - THROMBOCYTOPENIA [None]
